FAERS Safety Report 24368103 (Version 12)
Quarter: 2025Q1

REPORT INFORMATION
  Report Type: Report from Study
  Country: CA (occurrence: CA)
  Receive Date: 20240926
  Receipt Date: 20250123
  Transmission Date: 20250409
  Serious: Yes (Hospitalization)
  Sender: HLS THERAPEUTICS
  Company Number: CA-HLS-202402406

PATIENT
  Sex: Female

DRUGS (2)
  1. CLOZARIL [Suspect]
     Active Substance: CLOZAPINE
     Indication: Product used for unknown indication
     Route: 048
     Dates: start: 20250109
  2. CLOZARIL [Suspect]
     Active Substance: CLOZAPINE
     Indication: Product used for unknown indication
     Route: 048
     Dates: start: 20000928, end: 20241214

REACTIONS (6)
  - COVID-19 [Unknown]
  - Neutrophil count decreased [Recovered/Resolved]
  - Delusion [Not Recovered/Not Resolved]
  - Treatment noncompliance [Recovered/Resolved]
  - Dehydration [Unknown]
  - Feeding disorder [Unknown]
